FAERS Safety Report 8075594-8 (Version None)
Quarter: 2012Q1

REPORT INFORMATION
  Report Type: 
  Country: None (occurrence: None)
  Receive Date: 20120127
  Receipt Date: 20120124
  Transmission Date: 20120608
  Serious: Yes (Other)
  Sender: FDA-Public Use
  Company Number: US-SANOFI-AVENTIS-2012SA005111

PATIENT

DRUGS (7)
  1. OXALIPLATIN [Suspect]
     Indication: RECTAL CANCER
     Dosage: OVER 2 HOURS.
     Route: 042
  2. DIPHENHYDRAMINE HCL [Suspect]
     Indication: PREMEDICATION
     Route: 065
  3. PROCHLORPERAZINE [Suspect]
     Indication: PREMEDICATION
     Route: 065
  4. BEVACIZUMAB [Suspect]
     Indication: RECTAL CANCER
     Dosage: OVER 90 MINUTES
     Route: 042
  5. LEUCOVORIN CALCIUM [Suspect]
     Indication: RECTAL CANCER
     Dosage: OVER 2 HOUR
     Route: 042
  6. FLUOROURACIL [Suspect]
     Indication: RECTAL CANCER
     Dosage: INTRAVENOUS PUSH (ROUTE)
     Route: 042
  7. FLUOROURACIL [Suspect]
     Dosage: OVER 96 HOUR
     Route: 042

REACTIONS (1)
  - ARRHYTHMIA [None]
